FAERS Safety Report 18170295 (Version 1)
Quarter: 2020Q3

REPORT INFORMATION
  Report Type: Spontaneous
  Country: US (occurrence: US)
  Receive Date: 20200819
  Receipt Date: 20200819
  Transmission Date: 20201103
  Serious: No
  Sender: FDA-Public Use
  Company Number: US-GLAXOSMITHKLINE-US2020AMR160897

PATIENT
  Age: 60 Year
  Sex: Female

DRUGS (1)
  1. ANORO ELLIPTA [Suspect]
     Active Substance: UMECLIDINIUM BROMIDE\VILANTEROL TRIFENATATE
     Indication: PRODUCT USED FOR UNKNOWN INDICATION
     Dosage: 1 PUFF(S), QD, INHALE 1 PUFF BY MOUTH DAILY
     Route: 065
     Dates: start: 20180702

REACTIONS (2)
  - Dyspnoea [Unknown]
  - Intentional underdose [Unknown]

NARRATIVE: CASE EVENT DATE: 20200713
